FAERS Safety Report 8924704 (Version 2)
Quarter: 2013Q3

REPORT INFORMATION
  Report Type: Spontaneous
  Country: US (occurrence: US)
  Receive Date: 20121126
  Receipt Date: 20130717
  Transmission Date: 20140515
  Serious: Yes (Hospitalization, Disabling, Other)
  Sender: FDA-Public Use
  Company Number: US-009507513-1211USA008149

PATIENT
  Sex: Female

DRUGS (2)
  1. FOSAMAX [Suspect]
     Indication: OSTEOPOROSIS
     Dosage: 70 MG, WEEKLY
     Route: 048
     Dates: end: 201205
  2. CORTICOSTEROIDS (UNSPECIFIED) [Concomitant]
     Indication: ADVERSE EVENT
     Dosage: UNK
     Dates: start: 1970, end: 2012

REACTIONS (16)
  - Femur fracture [Unknown]
  - Open reduction of fracture [Unknown]
  - Femur fracture [Unknown]
  - Osteoporosis [Unknown]
  - Multiple fractures [Unknown]
  - Low turnover osteopathy [Unknown]
  - Humerus fracture [Unknown]
  - Neck surgery [Unknown]
  - Diabetes mellitus [Unknown]
  - Angiopathy [Unknown]
  - Vascular operation [Unknown]
  - Upper limb fracture [Unknown]
  - Fall [Unknown]
  - Fall [Unknown]
  - Vitamin D deficiency [Unknown]
  - Lower limb fracture [Unknown]
